FAERS Safety Report 4469651-2 (Version None)
Quarter: 2004Q4

REPORT INFORMATION
  Report Type: 
  Country: None (occurrence: None)
  Receive Date: 20041008
  Receipt Date: 20040901
  Transmission Date: 20050328
  Serious: Yes (Hospitalization)
  Sender: FDA-Public Use
  Company Number: 200416630US

PATIENT
  Sex: Female
  Weight: 61 kg

DRUGS (3)
  1. DOCETAXEL [Suspect]
     Indication: ANAL CANCER METASTATIC
     Route: 042
     Dates: start: 20040819, end: 20040819
  2. CISPLATIN [Suspect]
     Indication: ANAL CANCER METASTATIC
     Route: 042
     Dates: start: 20040819, end: 20040819
  3. CAPECITABINE [Suspect]
     Indication: ANAL CANCER METASTATIC
     Route: 048
     Dates: start: 20040819, end: 20040819

REACTIONS (14)
  - BLOOD ALBUMIN DECREASED [None]
  - BLOOD BILIRUBIN INCREASED [None]
  - BLOOD CALCIUM DECREASED [None]
  - BLOOD MAGNESIUM DECREASED [None]
  - BLOOD POTASSIUM DECREASED [None]
  - BLOOD SODIUM DECREASED [None]
  - DEHYDRATION [None]
  - ENTEROCOLITIS [None]
  - FEBRILE NEUTROPENIA [None]
  - FLUID RETENTION [None]
  - HAEMOGLOBIN DECREASED [None]
  - HYPERGLYCAEMIA [None]
  - ORAL CANDIDIASIS [None]
  - PLATELET COUNT DECREASED [None]
